FAERS Safety Report 9550560 (Version 1)
Quarter: 2013Q3

REPORT INFORMATION
  Report Type: Spontaneous
  Country: US (occurrence: US)
  Receive Date: 20130924
  Receipt Date: 20130924
  Transmission Date: 20140515
  Serious: No
  Sender: FDA-Public Use
  Company Number: US-SANOFI-AVENTIS-2013SA034064

PATIENT
  Sex: Female

DRUGS (7)
  1. AUBAGIO [Suspect]
     Indication: MULTIPLE SCLEROSIS
     Dosage: PRODUCT STARTED FOURTEEN DAYS AGO.
     Route: 048
     Dates: start: 201303
  2. RITALIN [Concomitant]
  3. GARLIC [Concomitant]
  4. VITAMIN E [Concomitant]
  5. VITAMIN D3 [Concomitant]
  6. MELATONIN [Concomitant]
  7. DIPHENHYDRAMINE HYDROCHLORIDE [Concomitant]

REACTIONS (4)
  - Malaise [Unknown]
  - Unevaluable event [Unknown]
  - Drug dose omission [Unknown]
  - Nausea [Unknown]
